FAERS Safety Report 7351858-8 (Version None)
Quarter: 2011Q1

REPORT INFORMATION
  Report Type: 
  Country: None (occurrence: None)
  Receive Date: 20110315
  Receipt Date: 20110306
  Transmission Date: 20110831
  Serious: Yes (Death)
  Sender: FDA-Public Use
  Company Number: US-JNJFOC-20110304731

PATIENT

DRUGS (5)
  1. ITRACONAZOLE [Suspect]
     Indication: ANTIFUNGAL PROPHYLAXIS
     Route: 042
  2. ITRACONAZOLE [Suspect]
     Dosage: 1 HOUR INFUSION FOR TWO CONSECUTIVE DAYS
     Route: 042
  3. CHEMOTHERAPY [Concomitant]
     Indication: MYELOID LEUKAEMIA
     Route: 065
  4. CHEMOTHERAPY [Concomitant]
     Indication: MYELODYSPLASTIC SYNDROME
     Route: 065
  5. LEVOFLOXACIN [Concomitant]
     Indication: ANTIBIOTIC PROPHYLAXIS
     Route: 048

REACTIONS (1)
  - FUSARIUM INFECTION [None]
